FAERS Safety Report 8329991-3 (Version None)
Quarter: 2012Q2

REPORT INFORMATION
  Report Type: 
  Country: None (occurrence: None)
  Receive Date: 20120502
  Receipt Date: 20120426
  Transmission Date: 20120825
  Serious: Yes (Other)
  Sender: FDA-Public Use
  Company Number: FR-PFIZER INC-2012104280

PATIENT
  Age: 35 Year
  Sex: Male

DRUGS (1)
  1. LYRICA [Suspect]
     Indication: PAIN
     Dosage: 50 MG, 1X/DAY

REACTIONS (4)
  - VISUAL IMPAIRMENT [None]
  - VISION BLURRED [None]
  - OPHTHALMOPLEGIA [None]
  - MIGRAINE [None]
